FAERS Safety Report 10173424 (Version 1)
Quarter: 2014Q2

REPORT INFORMATION
  Report Type: Spontaneous
  Country: US (occurrence: US)
  Receive Date: 20140515
  Receipt Date: 20140515
  Transmission Date: 20141212
  Serious: No
  Sender: FDA-Public Use
  Company Number: US-BAUSCH-BL-2013-004416

PATIENT
  Age: 88 Year
  Sex: Female

DRUGS (4)
  1. BROMDAY 0.09% [Suspect]
     Indication: POSTOPERATIVE CARE
     Dosage: ONE DROP INTO RIGHT EYE DAILY
     Route: 047
     Dates: start: 20130719
  2. BROMDAY 0.09% [Suspect]
     Dosage: ONE DROP INTO LEFT EYE DAILY
     Route: 047
     Dates: start: 20130719
  3. PROPRANOLOL [Concomitant]
     Indication: HYPERTENSION
  4. DILTIAZEM [Concomitant]
     Indication: HYPERTENSION

REACTIONS (2)
  - Off label use [Not Recovered/Not Resolved]
  - Headache [Not Recovered/Not Resolved]
